FAERS Safety Report 20706249 (Version 1)
Quarter: 2022Q2

REPORT INFORMATION
  Report Type: Spontaneous
  Country: US (occurrence: US)
  Receive Date: 20220413
  Receipt Date: 20220413
  Transmission Date: 20220721
  Serious: Yes (Other)
  Sender: FDA-Public Use
  Company Number: US-ARBOR PHARMACEUTICALS, LLC-US-2022ARB000921

PATIENT
  Age: 35 Year
  Sex: Male

DRUGS (1)
  1. AMPHETAMINE SULFATE [Suspect]
     Active Substance: AMPHETAMINE SULFATE
     Indication: Product used for unknown indication
     Dosage: UNK
     Route: 048

REACTIONS (6)
  - Cardiac arrest [Recovered/Resolved]
  - Stress cardiomyopathy [Recovered/Resolved]
  - Ventricular tachycardia [Recovered/Resolved]
  - Sinus bradycardia [Recovered/Resolved]
  - Overdose [Recovered/Resolved]
  - Electrocardiogram R on T phenomenon [Recovered/Resolved]
